FAERS Safety Report 8342913-4 (Version None)
Quarter: 2012Q2

REPORT INFORMATION
  Report Type: 
  Country: None (occurrence: None)
  Receive Date: 20120508
  Receipt Date: 20120503
  Transmission Date: 20120825
  Serious: No
  Sender: FDA-Public Use
  Company Number: US-PFIZER INC-2012105442

PATIENT
  Sex: Female

DRUGS (5)
  1. PROZAC [Concomitant]
     Indication: DEPRESSION
     Dosage: 3 MG,DAILY
  2. KLONOPIN [Concomitant]
     Indication: ANXIETY
     Dosage: 1 MG, 3X/DAY
  3. ASPIRIN [Concomitant]
     Dosage: 81 MG, UNK
  4. CHANTIX [Suspect]
     Indication: SMOKING CESSATION THERAPY
     Dosage: UNK
  5. PERCOCET [Concomitant]
     Indication: PAIN
     Dosage: UNK

REACTIONS (3)
  - SLEEP DISORDER [None]
  - ANXIETY [None]
  - ABNORMAL DREAMS [None]
